FAERS Safety Report 21315452 (Version 1)
Quarter: 2022Q3

REPORT INFORMATION
  Report Type: Report from Study
  Country: DE (occurrence: DE)
  Receive Date: 20220909
  Receipt Date: 20220909
  Transmission Date: 20221027
  Serious: Yes (Hospitalization, Other)
  Sender: FDA-Public Use
  Company Number: DE-MYLANLABS-2022M1080326

PATIENT
  Sex: Male

DRUGS (14)
  1. UNSPECIFIED INGREDIENT [Suspect]
     Active Substance: UNSPECIFIED INGREDIENT
     Dosage: NO DOSE GIVEN
  2. METHOTREXATE SODIUM [Suspect]
     Active Substance: METHOTREXATE SODIUM
     Indication: Rheumatoid arthritis
     Dosage: 10 MILLIGRAM
     Dates: start: 20170401
  3. METHOTREXATE SODIUM [Suspect]
     Active Substance: METHOTREXATE SODIUM
     Dosage: 10 MILLIGRAM
     Dates: start: 20170801
  4. METHOTREXATE SODIUM [Suspect]
     Active Substance: METHOTREXATE SODIUM
     Dosage: 10 MILLIGRAM
     Dates: start: 20171018
  5. METHOTREXATE SODIUM [Suspect]
     Active Substance: METHOTREXATE SODIUM
     Dosage: 10 MILLIGRAM
     Dates: start: 20180425
  6. METHOTREXATE SODIUM [Suspect]
     Active Substance: METHOTREXATE SODIUM
     Dosage: 10 MILLIGRAM
     Dates: start: 20181106
  7. METHOTREXATE SODIUM [Suspect]
     Active Substance: METHOTREXATE SODIUM
     Dosage: 5 MILLIGRAM
  8. OLUMIANT [Concomitant]
     Active Substance: BARICITINIB
     Dosage: 4 MILLIGRAM
     Dates: start: 20170401, end: 202002
  9. OLUMIANT [Concomitant]
     Active Substance: BARICITINIB
     Dosage: 4 MILLIGRAM
     Dates: start: 20170801
  10. OLUMIANT [Concomitant]
     Active Substance: BARICITINIB
     Dosage: 4 MILLIGRAM
     Dates: start: 20171018
  11. OLUMIANT [Concomitant]
     Active Substance: BARICITINIB
     Dosage: 4 MILLIGRAM
     Dates: start: 20180425
  12. OLUMIANT [Concomitant]
     Active Substance: BARICITINIB
     Dosage: 4 MILLIGRAM
     Dates: start: 20181106
  13. OLUMIANT [Concomitant]
     Active Substance: BARICITINIB
     Dosage: 4 MILLIGRAM
     Dates: start: 20190514
  14. OLUMIANT [Concomitant]
     Active Substance: BARICITINIB
     Dosage: 4 MILLIGRAM
     Dates: start: 20191113

REACTIONS (8)
  - COVID-19 [Recovered/Resolved]
  - Inappropriate antidiuretic hormone secretion [Not Recovered/Not Resolved]
  - Leukopenia [Unknown]
  - Thrombocytosis [Not Recovered/Not Resolved]
  - Microcytic anaemia [Not Recovered/Not Resolved]
  - Pneumonia [Unknown]
  - Rheumatoid arthritis [Not Recovered/Not Resolved]
  - Hypocalcaemia [Not Recovered/Not Resolved]

NARRATIVE: CASE EVENT DATE: 20210106
